FAERS Safety Report 8511311-2 (Version None)
Quarter: 2012Q3

REPORT INFORMATION
  Report Type: 
  Country: None (occurrence: None)
  Receive Date: 20120716
  Receipt Date: 20120703
  Transmission Date: 20120928
  Serious: Yes (Other)
  Sender: FDA-Public Use
  Company Number: US-SANOFI-AVENTIS-2012SA037765

PATIENT
  Age: 84 Year
  Sex: Male
  Weight: 100 kg

DRUGS (17)
  1. LASIX [Concomitant]
     Dates: start: 20110706
  2. NITROSTAT [Concomitant]
     Route: 060
     Dates: start: 20100315
  3. TOPROL-XL [Concomitant]
     Dates: start: 20100122
  4. LANTUS [Concomitant]
     Dosage: DOSE:20 UNIT(S)
     Dates: start: 20100122
  5. ZAROXOLYN [Concomitant]
     Dates: start: 20110620
  6. LEVOTHYROXINE SODIUM [Concomitant]
     Dates: start: 20110224
  7. VESICARE [Concomitant]
     Dates: start: 20100122
  8. MULTAQ [Suspect]
     Indication: ATRIAL FIBRILLATION
     Route: 048
     Dates: start: 20110601, end: 20120517
  9. ZETIA [Concomitant]
     Dates: start: 20120124
  10. TOPAMAX [Concomitant]
     Dosage: 2 TABS DAILY
     Dates: start: 20100819
  11. MAGNESIUM SULFATE [Concomitant]
     Dates: start: 20100819
  12. COUMADIN [Concomitant]
     Dates: start: 20120124
  13. SIMVASTATIN [Concomitant]
     Dosage: 1/2 HALF DAILY
     Dates: start: 20110818
  14. COZAAR [Concomitant]
     Dates: start: 20100122
  15. HUMALOG [Concomitant]
     Dosage: DOSE:100 UNIT(S)
     Dates: start: 20100122
  16. POTASSIUM CHLORIDE [Concomitant]
     Dates: start: 20110624
  17. LOVAZA [Concomitant]
     Dates: start: 20100122

REACTIONS (2)
  - PULMONARY TOXICITY [None]
  - DYSPNOEA [None]
